FAERS Safety Report 6367117-6 (Version None)
Quarter: 2009Q3

REPORT INFORMATION
  Report Type: 
  Country: None (occurrence: None)
  Receive Date: 20090921
  Receipt Date: 20090715
  Transmission Date: 20100115
  Serious: No
  Sender: FDA-Public Use
  Company Number: US-BAYER-200926809NA

PATIENT
  Age: 2 Year
  Sex: Female

DRUGS (1)
  1. YAZ [Suspect]
     Dosage: UNIT DOSE: 1 DF

REACTIONS (1)
  - NO ADVERSE EVENT [None]
